FAERS Safety Report 5725479-4 (Version None)
Quarter: 2008Q2

REPORT INFORMATION
  Report Type: 
  Country: None (occurrence: None)
  Receive Date: 20080501
  Receipt Date: 20080421
  Transmission Date: 20081010
  Serious: Yes (Other)
  Sender: FDA-Public Use
  Company Number: US-JNJFOC-20080405753

PATIENT
  Sex: Female
  Weight: 56.7 kg

DRUGS (5)
  1. DURAGESIC-100 [Suspect]
     Route: 062
  2. DURAGESIC-100 [Suspect]
     Indication: PAIN IN EXTREMITY
     Route: 062
  3. FENTANYL TRANSDERMAL SYSTEM [Suspect]
     Indication: PAIN IN EXTREMITY
     Route: 062
  4. ULTRAM [Concomitant]
     Indication: PAIN IN EXTREMITY
     Route: 048
  5. XANAX [Concomitant]
     Indication: ANXIETY
     Route: 048

REACTIONS (4)
  - APPLICATION SITE VESICLES [None]
  - BLOOD CHOLESTEROL INCREASED [None]
  - CARDIAC VALVE DISEASE [None]
  - HYPERTENSION [None]
